FAERS Safety Report 7421564-X (Version None)
Quarter: 2011Q2

REPORT INFORMATION
  Report Type: 
  Country: None (occurrence: None)
  Receive Date: 20110418
  Receipt Date: 20110407
  Transmission Date: 20111010
  Serious: Yes (Hospitalization)
  Sender: FDA-Public Use
  Company Number: CA-AMGEN-CANSP2011010443

PATIENT
  Age: 69 Year
  Sex: Male
  Weight: 72.6 kg

DRUGS (12)
  1. SENNA                              /00571901/ [Concomitant]
     Dosage: 8.6 MG, QD
  2. DIOVAN [Concomitant]
     Indication: HYPERTENSION
     Dosage: 80 MG, QD
  3. VITAMIN A [Concomitant]
     Dosage: 1000 UNIT, QD
  4. COLACE [Concomitant]
     Dosage: 100 MG, BID
  5. METHOTREXATE [Concomitant]
     Dosage: UNK
     Dates: start: 20051101, end: 20090601
  6. ACETAMINOPHEN W/ CODEINE [Concomitant]
  7. LEFLUNOMIDE [Suspect]
     Dosage: UNK
     Dates: start: 20090601
  8. ENBREL [Suspect]
     Indication: RHEUMATOID ARTHRITIS
     Dosage: 50 MG, QWK
     Dates: start: 20090505
  9. VITAMIN C                          /00008001/ [Concomitant]
  10. ASPIRIN [Concomitant]
     Dosage: 81 MG, BID
  11. CALCIUM [Concomitant]
     Dosage: 500 MG, BID
  12. SULFASALAZINE [Concomitant]
     Dosage: UNK
     Dates: start: 20051101, end: 20060301

REACTIONS (9)
  - SNORING [None]
  - ABDOMINAL PAIN UPPER [None]
  - ABSCESS [None]
  - OXYGEN SATURATION DECREASED [None]
  - LETHARGY [None]
  - BODY TEMPERATURE DECREASED [None]
  - CHOLECYSTITIS [None]
  - DECREASED APPETITE [None]
  - WEIGHT DECREASED [None]
